FAERS Safety Report 5595107-X (Version None)
Quarter: 2008Q1

REPORT INFORMATION
  Report Type: 
  Country: None (occurrence: None)
  Receive Date: 20080117
  Receipt Date: 20080109
  Transmission Date: 20080703
  Serious: Yes (Other)
  Sender: FDA-Public Use
  Company Number: CA-ROXANE LABORATORIES, INC-2008-BP-00355RO

PATIENT
  Age: 70 Year
  Sex: Female

DRUGS (17)
  1. PREDNISONE TAB [Suspect]
     Indication: ADRENAL INSUFFICIENCY
     Dates: start: 20060529
  2. PREDNISONE TAB [Suspect]
     Dates: start: 20060612
  3. PHENYTOIN [Suspect]
     Indication: CONVULSION
     Dates: start: 20060529
  4. LEVOTHYROXINE SODIUM [Concomitant]
  5. FLUTICASONE PROPIONATE [Concomitant]
  6. ASPIRIN [Concomitant]
  7. ATORVASTATIN [Concomitant]
  8. CARBIDOPA AND LEVODOPA [Concomitant]
  9. CALCIUM CARBONATE [Concomitant]
  10. DOCUSATE SODIUM [Concomitant]
  11. HEPARIN [Concomitant]
  12. CABERGOLINE [Concomitant]
  13. HYDROCORTISONE [Concomitant]
     Route: 042
     Dates: start: 20060605
  14. HYDROCORTISONE [Concomitant]
     Route: 042
  15. HYDROCORTISONE [Concomitant]
     Route: 048
  16. KEPPRA [Concomitant]
     Indication: CONVULSION
     Dates: start: 20060608
  17. KEPPRA [Concomitant]

REACTIONS (6)
  - ADRENAL INSUFFICIENCY [None]
  - ADRENOCORTICAL INSUFFICIENCY ACUTE [None]
  - BLOOD PRESSURE SYSTOLIC DECREASED [None]
  - DRUG INTERACTION [None]
  - HYPOPITUITARISM [None]
  - LOSS OF CONSCIOUSNESS [None]
